FAERS Safety Report 20087359 (Version 1)
Quarter: 2021Q4

REPORT INFORMATION
  Report Type: Report from Study
  Country: US (occurrence: US)
  Receive Date: 20211118
  Receipt Date: 20211118
  Transmission Date: 20220303
  Serious: Yes (Other)
  Sender: FDA-Public Use
  Company Number: US-JNJFOC-20211126438

PATIENT
  Age: 65 Year
  Sex: Female

DRUGS (5)
  1. SPRAVATO [Suspect]
     Active Substance: ESKETAMINE
     Indication: Depression
     Dosage: 4 DOSES
     Dates: start: 20201110, end: 20201119
  2. SPRAVATO [Suspect]
     Active Substance: ESKETAMINE
     Dosage: 11 DOSES
     Dates: start: 20201124, end: 20210107
  3. SPRAVATO [Suspect]
     Active Substance: ESKETAMINE
     Dosage: 1 DOSE
     Dates: start: 20210112, end: 20210112
  4. SPRAVATO [Suspect]
     Active Substance: ESKETAMINE
     Dosage: 58 DOSES
     Dates: start: 20210114, end: 20211103
  5. SPRAVATO [Suspect]
     Active Substance: ESKETAMINE
     Dosage: RECENT DOSE
     Dates: start: 20211105, end: 20211105

REACTIONS (3)
  - Orthostatic hypotension [Recovered/Resolved]
  - Sedation [Recovered/Resolved]
  - Dissociation [Recovered/Resolved]

NARRATIVE: CASE EVENT DATE: 20211105
